FAERS Safety Report 4422347-5 (Version None)
Quarter: 2004Q3

REPORT INFORMATION
  Report Type: 
  Country: None (occurrence: None)
  Receive Date: 20040810
  Receipt Date: 20040804
  Transmission Date: 20050211
  Serious: Yes (Other)
  Sender: FDA-Public Use
  Company Number: GB-BRISTOL-MYERS SQUIBB COMPANY-12660494

PATIENT
  Age: 44 Year
  Sex: Male
  Weight: 92 kg

DRUGS (5)
  1. SUSTIVA [Suspect]
     Indication: HIV INFECTION
     Route: 048
     Dates: start: 20040623
  2. COMBIVIR [Concomitant]
     Route: 048
     Dates: start: 20040623
  3. CO-PROXAMOL [Concomitant]
     Route: 048
  4. TERBINAFINE HCL [Concomitant]
     Dosage: ^250^
     Route: 048
     Dates: start: 20040526
  5. LUSTRAL [Concomitant]
     Route: 048
     Dates: start: 20040301

REACTIONS (3)
  - CONFUSIONAL STATE [None]
  - NICOTINE DEPENDENCE [None]
  - PARANOIA [None]
